FAERS Safety Report 18347200 (Version 1)
Quarter: 2020Q4

REPORT INFORMATION
  Report Type: Spontaneous
  Country: TH (occurrence: TH)
  Receive Date: 20201005
  Receipt Date: 20201005
  Transmission Date: 20210114
  Serious: Yes (Hospitalization, Other)
  Sender: FDA-Public Use
  Company Number: TH-ROCHE-2686441

PATIENT
  Age: 59 Year
  Sex: Female
  Weight: 66 kg

DRUGS (10)
  1. CYCLOPHOSPHAMIDE. [Suspect]
     Active Substance: CYCLOPHOSPHAMIDE
     Indication: B-CELL LYMPHOMA STAGE IV
     Dosage: D1-2 (SPLIT 100+900),8,15
     Route: 065
  2. GRANULOCYTE-COLONY STIMULATING FACTOR (G-CSF) (UNK INGREDIENTS) [Concomitant]
     Indication: PROPHYLAXIS
     Dosage: FOR 7 DAYS
  3. OBINUTUZUMAB. [Suspect]
     Active Substance: OBINUTUZUMAB
     Indication: B-CELL LYMPHOMA STAGE IV
     Dosage: D1-2 (SPLIT 100+900),8,15
     Route: 042
  4. CHLORPHENIRAMINE MALEATE. [Concomitant]
     Active Substance: CHLORPHENIRAMINE MALEATE
     Indication: PREMEDICATION
  5. VINCRISTINE [Suspect]
     Active Substance: VINCRISTINE
     Indication: B-CELL LYMPHOMA STAGE IV
     Dosage: D1-2 (SPLIT 100+900),8,15
     Route: 065
  6. DOXORUBICIN [Suspect]
     Active Substance: DOXORUBICIN
     Indication: B-CELL LYMPHOMA STAGE IV
     Dosage: D1-2 (SPLIT 100+900),8,15
     Route: 065
  7. DEXAMETHASONE. [Concomitant]
     Active Substance: DEXAMETHASONE
     Indication: PREMEDICATION
  8. ONDANSETRON [Concomitant]
     Active Substance: ONDANSETRON
     Indication: PREMEDICATION
  9. PREDNISONE. [Suspect]
     Active Substance: PREDNISONE
     Indication: B-CELL LYMPHOMA STAGE IV
     Dosage: D1-2 (SPLIT 100+900),8,15
     Route: 065
  10. PARACETAMOL [Concomitant]
     Active Substance: ACETAMINOPHEN
     Indication: PREMEDICATION

REACTIONS (4)
  - Pneumonia [Recovering/Resolving]
  - Spinal compression fracture [Unknown]
  - Spinal compression fracture [Not Recovered/Not Resolved]
  - Urinary tract infection [Unknown]
